FAERS Safety Report 23143105 (Version 2)
Quarter: 2025Q2

REPORT INFORMATION
  Report Type: Spontaneous
  Country: US (occurrence: US)
  Receive Date: 20231103
  Receipt Date: 20250506
  Transmission Date: 20250716
  Serious: No
  Sender: SUNOVION
  Company Number: US-MYOVANT SCIENCES GMBH-2023MYSCI0900518

PATIENT

DRUGS (1)
  1. ORGOVYX [Suspect]
     Active Substance: RELUGOLIX
     Indication: Prostate cancer
     Dosage: 120 MILLIGRAM, QD, AROUND THE SAME TIME EACH DAY
     Route: 048
     Dates: end: 20230914

REACTIONS (4)
  - Influenza like illness [Unknown]
  - Therapy interrupted [Unknown]
  - Product dose omission issue [Recovered/Resolved]
  - Product use issue [Unknown]

NARRATIVE: CASE EVENT DATE: 20230915
